FAERS Safety Report 8784347 (Version 3)
Quarter: 2012Q4

REPORT INFORMATION
  Report Type: 
  Country: PL (occurrence: PL)
  Receive Date: 20120913
  Receipt Date: 20121009
  Transmission Date: 20130627
  Serious: Yes (Other)
  Sender: FDA-Public Use
  Company Number: PL-BAYER-2012-094478

PATIENT
  Age: 44 Year
  Sex: Female

DRUGS (1)
  1. BETAFERON [Suspect]
     Dosage: 250 ?g, UNK
     Route: 058
     Dates: start: 20101013, end: 201209

REACTIONS (3)
  - Injection site necrosis [None]
  - Injection site atrophy [None]
  - Skin disorder [None]
